FAERS Safety Report 5830539-3 (Version None)
Quarter: 2008Q3

REPORT INFORMATION
  Report Type: 
  Country: None (occurrence: None)
  Receive Date: 20080801
  Receipt Date: 20070703
  Transmission Date: 20090109
  Serious: Yes (Hospitalization)
  Sender: FDA-Public Use
  Company Number: US-BRISTOL-MYERS SQUIBB COMPANY-13834981

PATIENT
  Age: 82 Year
  Sex: Male
  Weight: 91 kg

DRUGS (2)
  1. COUMADIN [Suspect]
     Indication: ATRIAL FIBRILLATION
  2. CHOLESTEROL MEDICATION [Concomitant]

REACTIONS (1)
  - EYE HAEMORRHAGE [None]
